FAERS Safety Report 9501072 (Version 1)
Quarter: 2013Q1

REPORT INFORMATION
  Report Type: Spontaneous
  Country: US (occurrence: None)
  Receive Date: 20130107
  Receipt Date: 20130107
  Transmission Date: 20140127
  Serious: No
  Sender: FDA-Public Use
  Company Number: PHEH2012US018847

PATIENT
  Age: 32 Year
  Sex: Female

DRUGS (5)
  1. GILENYA ( FTY) CAPSULE, 0.5 MG [Suspect]
     Indication: RELAPSING-REMITTING MULTIPLE SCLEROSIS
     Route: 048
     Dates: start: 20120918, end: 20120925
  2. DOXYCYCLINE ( DOXYCYCLINE) [Concomitant]
  3. PROVIGIL ( MODAFINIL) [Concomitant]
  4. HYDROCHLOROTHIAZIDE ( HYDROCHLOROTHIAZIDE) [Concomitant]
  5. LISINOPRIL ( LISINOPRIL) [Concomitant]

REACTIONS (3)
  - Feeling abnormal [None]
  - Chest discomfort [None]
  - Palpitations [None]
